FAERS Safety Report 7310179-X (Version None)
Quarter: 2011Q1

REPORT INFORMATION
  Report Type: 
  Country: None (occurrence: None)
  Receive Date: 20110224
  Receipt Date: 20110215
  Transmission Date: 20110831
  Serious: No
  Sender: FDA-Public Use
  Company Number: US-PFIZER INC-2010174944

PATIENT
  Sex: Female
  Weight: 82 kg

DRUGS (6)
  1. CHANTIX [Suspect]
     Dosage: 0.5 MG, 2X/DAY
     Route: 048
     Dates: start: 20101201
  2. VITAMIN D [Concomitant]
     Dosage: UNK
  3. COMBIVENT [Concomitant]
  4. AZITHROMYCIN [Concomitant]
     Dosage: UNK
     Dates: start: 20101110
  5. PROZAC [Concomitant]
     Indication: DEPRESSION
     Dosage: 20 1X/DAY
     Dates: start: 20101110
  6. CHANTIX [Suspect]
     Indication: SMOKING CESSATION THERAPY
     Dosage: 0.5 MG, 1X/DAY
     Route: 048
     Dates: start: 20101209, end: 20101201

REACTIONS (1)
  - BLISTER [None]
